FAERS Safety Report 5163501-7 (Version None)
Quarter: 2006Q4

REPORT INFORMATION
  Report Type: 
  Country: None (occurrence: None)
  Receive Date: 20061204
  Receipt Date: 20061121
  Transmission Date: 20070319
  Serious: Yes (Other)
  Sender: FDA-Public Use
  Company Number: US-JNJFOC-20061105184

PATIENT
  Sex: Female
  Weight: 47.63 kg

DRUGS (9)
  1. REMICADE [Suspect]
  2. REMICADE [Suspect]
  3. REMICADE [Suspect]
  4. REMICADE [Suspect]
  5. REMICADE [Suspect]
     Indication: CROHN'S DISEASE
  6. AZATHIOPRINE [Concomitant]
  7. ZYRTEC [Concomitant]
  8. ESTRADIOL INJ [Concomitant]
  9. SUDAFED 12 HOUR [Concomitant]

REACTIONS (2)
  - CHOLELITHIASIS [None]
  - CYST [None]
